FAERS Safety Report 18851479 (Version 2)
Quarter: 2021Q2

REPORT INFORMATION
  Report Type: Spontaneous
  Country: US (occurrence: US)
  Receive Date: 20210205
  Receipt Date: 20210407
  Transmission Date: 20210717
  Serious: Yes (Other)
  Sender: FDA-Public Use
  Company Number: US-LEO PHARMA-334571

PATIENT
  Age: 45 Year
  Sex: Female

DRUGS (2)
  1. DUOBRII [Suspect]
     Active Substance: HALOBETASOL PROPIONATE\TAZAROTENE
     Indication: PSORIASIS
     Dates: start: 20210108
  2. ENSTILAR [Suspect]
     Active Substance: BETAMETHASONE DIPROPIONATE\CALCIPOTRIENE HYDRATE
     Indication: PSORIASIS
     Dates: start: 20210108

REACTIONS (4)
  - Skin burning sensation [Recovered/Resolved]
  - Thermal burn [Recovered/Resolved]
  - Exfoliative rash [Recovered/Resolved]
  - Skin exfoliation [Recovered/Resolved]
